FAERS Safety Report 5385557-9 (Version None)
Quarter: 2007Q3

REPORT INFORMATION
  Report Type: 
  Country: None (occurrence: None)
  Receive Date: 20070712
  Receipt Date: 20070709
  Transmission Date: 20080115
  Serious: Yes (Hospitalization)
  Sender: FDA-Public Use
  Company Number: B0478359A

PATIENT
  Age: 95 Year
  Sex: Female

DRUGS (7)
  1. AUGMENTIN '125' [Suspect]
     Dosage: 1G TWICE PER DAY
     Route: 042
     Dates: start: 20070619, end: 20070622
  2. ARIXTRA [Concomitant]
     Route: 065
     Dates: start: 20070619
  3. LASIX [Concomitant]
     Route: 065
  4. CORDARONE [Concomitant]
     Route: 065
  5. RISORDAN [Concomitant]
     Route: 065
  6. SERESTA [Concomitant]
     Indication: ANXIETY
     Dosage: 125MG PER DAY
     Route: 065
  7. DIGOXIN [Concomitant]
     Route: 065
     Dates: end: 20070622

REACTIONS (4)
  - BLOOD BILIRUBIN INCREASED [None]
  - HAEMOLYSIS [None]
  - JAUNDICE [None]
  - TRANSAMINASES INCREASED [None]
